FAERS Safety Report 7255360-3 (Version None)
Quarter: 2011Q1

REPORT INFORMATION
  Report Type: 
  Country: None (occurrence: None)
  Receive Date: 20110129
  Receipt Date: 20100319
  Transmission Date: 20110831
  Serious: No
  Sender: FDA-Public Use
  Company Number: US-ABBOTT-10P-163-0634561-00

PATIENT
  Sex: Female
  Weight: 70.37 kg

DRUGS (15)
  1. SINGULAIR [Concomitant]
     Indication: ASTHMA
  2. GLUCOSAMINE CONDROITIN TRIPLE STRENGTH [Concomitant]
     Indication: MEDICAL DIET
  3. CALCIUM [Concomitant]
     Indication: MINERAL SUPPLEMENTATION
  4. FOLIC ACID [Concomitant]
     Indication: VITAMIN SUPPLEMENTATION
  5. KLOR-CON [Concomitant]
     Indication: MINERAL SUPPLEMENTATION
  6. ALLOPURINOL [Concomitant]
     Indication: PRODUCT USED FOR UNKNOWN INDICATION
  7. TRAZODONE [Concomitant]
     Indication: PRODUCT USED FOR UNKNOWN INDICATION
  8. CITRUCEL [Concomitant]
     Indication: PRODUCT USED FOR UNKNOWN INDICATION
     Dosage: 1 SCOOP DAILY
  9. METHOTREXATE [Concomitant]
     Indication: RHEUMATOID ARTHRITIS
  10. ADVAIR [Concomitant]
     Indication: ASTHMA
  11. HUMIRA [Suspect]
     Indication: RHEUMATOID ARTHRITIS
     Dates: start: 20100201
  12. PREDNISONE [Concomitant]
     Indication: RHEUMATOID ARTHRITIS
     Route: 048
  13. FUROSEMIDE [Concomitant]
     Indication: PRODUCT USED FOR UNKNOWN INDICATION
  14. MIACALCIN/CALCITONIN [Concomitant]
     Indication: PRODUCT USED FOR UNKNOWN INDICATION
  15. ARTHROTEC [Concomitant]
     Indication: ARTHRITIS

REACTIONS (1)
  - ALOPECIA [None]
